FAERS Safety Report 9520671 (Version 3)
Quarter: 2014Q1

REPORT INFORMATION
  Report Type: Report from Study
  Country: AU (occurrence: AU)
  Receive Date: 20130913
  Receipt Date: 20140312
  Transmission Date: 20141002
  Serious: Yes (Other)
  Sender: FDA-Public Use
  Company Number: AU-ROCHE-1272745

PATIENT
  Sex: Female

DRUGS (1)
  1. ACTEMRA [Suspect]
     Indication: RHEUMATOID ARTHRITIS
     Dosage: 1 EVERY 28 DAYS
     Route: 042
     Dates: start: 20130812

REACTIONS (4)
  - Type 2 diabetes mellitus [Unknown]
  - Orthostatic hypotension [Unknown]
  - Lethargy [Unknown]
  - Fatigue [Unknown]
